FAERS Safety Report 7134310-4 (Version None)
Quarter: 2010Q4

REPORT INFORMATION
  Report Type: 
  Country: None (occurrence: None)
  Receive Date: 20101203
  Receipt Date: 20101124
  Transmission Date: 20110411
  Serious: Yes (Death)
  Sender: FDA-Public Use
  Company Number: GB-NOVOPROD-317930

PATIENT
  Age: 33 Year
  Sex: Female

DRUGS (2)
  1. MIXTARD HUMAN 70/30 [Suspect]
     Indication: OFF LABEL USE
  2. ACETAMINOPHEN [Concomitant]
     Dosage: 48 TAB, UNK

REACTIONS (2)
  - DEATH [None]
  - INTENTIONAL DRUG MISUSE [None]
